FAERS Safety Report 9788390 (Version 4)
Quarter: 2014Q1

REPORT INFORMATION
  Report Type: Spontaneous
  Country: US (occurrence: US)
  Receive Date: 20131230
  Receipt Date: 20140213
  Transmission Date: 20141002
  Serious: Yes (Hospitalization, Other)
  Sender: FDA-Public Use
  Company Number: US-009507513-1312USA011021

PATIENT
  Sex: Male

DRUGS (3)
  1. TEMODAR [Suspect]
     Indication: HEAD AND NECK CANCER
     Route: 048
  2. CISPLATIN [Suspect]
  3. 5-FU [Suspect]

REACTIONS (6)
  - Neoplasm malignant [Unknown]
  - Neoplasm [Unknown]
  - Renal impairment [Unknown]
  - Alopecia [Unknown]
  - Weight decreased [Unknown]
  - Drug ineffective [Unknown]
